FAERS Safety Report 7267274-3 (Version None)
Quarter: 2011Q1

REPORT INFORMATION
  Report Type: 
  Country: None (occurrence: None)
  Receive Date: 20110201
  Receipt Date: 20110124
  Transmission Date: 20110831
  Serious: Yes (Other)
  Sender: FDA-Public Use
  Company Number: US-ASTRAZENECA-2011SE03167

PATIENT
  Age: 44 Year
  Sex: Female

DRUGS (3)
  1. PRILOSEC [Suspect]
     Route: 048
  2. PRILOSEC OTC [Suspect]
     Route: 048
  3. NEXIUM [Suspect]
     Route: 048

REACTIONS (6)
  - GLOSSITIS [None]
  - ERUCTATION [None]
  - CHRONIC MYELOID LEUKAEMIA [None]
  - GASTROOESOPHAGEAL REFLUX DISEASE [None]
  - DYSGEUSIA [None]
  - DRUG INEFFECTIVE [None]
